FAERS Safety Report 23800233 (Version 1)
Quarter: 2024Q2

REPORT INFORMATION
  Report Type: Spontaneous
  Country: US (occurrence: US)
  Receive Date: 20240430
  Receipt Date: 20240430
  Transmission Date: 20240716
  Serious: Yes (Other)
  Sender: FDA-Public Use
  Company Number: US-BRISTOL-MYERS SQUIBB COMPANY-2024-066996

PATIENT
  Age: 97 Year
  Sex: Male
  Weight: 78.02 kg

DRUGS (1)
  1. ELIQUIS [Suspect]
     Active Substance: APIXABAN
     Indication: Product used for unknown indication
     Dates: start: 202404

REACTIONS (5)
  - Wheezing [Unknown]
  - Speech disorder [Unknown]
  - Atrial fibrillation [Unknown]
  - Weight decreased [Unknown]
  - Macular degeneration [Unknown]

NARRATIVE: CASE EVENT DATE: 20240401
